FAERS Safety Report 4992571-1 (Version None)
Quarter: 2006Q1

REPORT INFORMATION
  Report Type: 
  Country: None (occurrence: None)
  Receive Date: 20060315
  Receipt Date: 20051021
  Transmission Date: 20060701
  Serious: Yes (Life-Threatening, Hospitalization)
  Sender: FDA-Public Use
  Company Number: USA0510110192

PATIENT
  Age: 71 Year
  Sex: Male

DRUGS (5)
  1. GEMZAR [Suspect]
     Indication: NON-SMALL CELL LUNG CANCER
     Dosage: 1688 MG, INTRAVENOUS
     Route: 042
  2. CARBOPLATIN [Concomitant]
  3. PALONOSETRON (PALONOSETRON) [Concomitant]
  4. DEXAMETHASONE [Concomitant]
  5. LORAZEPAM [Concomitant]

REACTIONS (1)
  - ANAPHYLACTIC REACTION [None]
